FAERS Safety Report 17428846 (Version 1)
Quarter: 2020Q1

REPORT INFORMATION
  Report Type: Spontaneous
  Country: US (occurrence: US)
  Receive Date: 20200217
  Receipt Date: 20200217
  Transmission Date: 20200409
  Serious: No
  Sender: FDA-Public Use
  Company Number: US-TEVA-2020-US-1185009

PATIENT
  Age: 58 Year
  Sex: Female

DRUGS (1)
  1. COPAXONE [Suspect]
     Active Substance: GLATIRAMER ACETATE
     Dosage: FORM STRENGTH: UNKNOWN, DOSE NOT SPECIFIED
     Route: 065

REACTIONS (5)
  - Erythema [Unknown]
  - Nasopharyngitis [Unknown]
  - Flushing [Unknown]
  - Muscle spasms [Unknown]
  - Nausea [Unknown]
